FAERS Safety Report 10222779 (Version 2)
Quarter: 2014Q2

REPORT INFORMATION
  Report Type: Report from Study
  Country: DE (occurrence: DE)
  Receive Date: 20140606
  Receipt Date: 20140606
  Transmission Date: 20141212
  Serious: Yes (Hospitalization)
  Sender: FDA-Public Use
  Company Number: DE-BRISTOL-MYERS SQUIBB COMPANY-20797825

PATIENT
  Age: 73 Year
  Sex: Male
  Weight: 78.9 kg

DRUGS (20)
  1. NIVOLUMAB [Suspect]
     Indication: METASTATIC MALIGNANT MELANOMA
     Dates: start: 20131022
  2. IPILIMUMAB [Suspect]
     Indication: METASTATIC MALIGNANT MELANOMA
     Dates: start: 20131022
  3. BLINDED: PLACEBO [Suspect]
     Indication: METASTATIC MALIGNANT MELANOMA
     Dates: start: 20131022
  4. ALLOPURINOL [Concomitant]
     Dates: start: 19601101
  5. METFORMIN [Concomitant]
     Dosage: 0-0-1
     Dates: start: 20031101
  6. BISOPROLOL [Concomitant]
     Dates: start: 20071101
  7. CALCIUM [Concomitant]
     Dates: start: 20101101
  8. PANTOZOL [Concomitant]
     Dosage: 1-0-0
     Dates: start: 20101101
  9. PREDNISOLONE [Concomitant]
     Dosage: INFLANEFRAN FORTE EYE DROPS?1DF:5UNIT NOS?10MG/ML
     Route: 061
     Dates: start: 20131126
  10. CARBIMAZOLE [Concomitant]
     Dates: start: 20131205
  11. HYDROCORTISONE [Concomitant]
     Dosage: 1DF: 5UNIT NOS?10MG?3-0-0
     Dates: start: 20140217
  12. L-THYROXINE [Concomitant]
     Dosage: 26MAR14-ONGOING:50UNIT NOS.
     Dates: start: 20140220
  13. LOPERAMIDE [Concomitant]
     Dates: start: 20140225
  14. FUROSEMIDE [Concomitant]
     Dosage: 25MAR14-20MG
     Dates: start: 20101101
  15. TORASEMIDE [Concomitant]
     Dosage: 2-2-0
  16. METOPROLOL [Concomitant]
     Dosage: 47,5 MG 1-0-1
  17. SPIRONOLACTONE [Concomitant]
     Dosage: 1-0-0
  18. GLIBENCLAMIDE [Concomitant]
     Dosage: 1/2 1F REQUIRED
     Dates: start: 20031101
  19. RAMIPRIL [Concomitant]
     Dosage: 1-0-1
     Dates: start: 20071101
  20. ASS [Concomitant]
     Dosage: 0-1-0
     Dates: start: 20071101

REACTIONS (1)
  - Cardiomyopathy [Recovered/Resolved]
